FAERS Safety Report 22116865 (Version 4)
Quarter: 2023Q2

REPORT INFORMATION
  Report Type: Report from Study
  Country: CN (occurrence: CN)
  Receive Date: 20230320
  Receipt Date: 20230421
  Transmission Date: 20230722
  Serious: Yes (Hospitalization)
  Sender: FDA-Public Use
  Company Number: CN-PFIZER INC-PV202300051209

PATIENT
  Age: 67 Year
  Sex: Male
  Weight: 59 kg

DRUGS (13)
  1. INLYTA [Suspect]
     Active Substance: AXITINIB
     Indication: Squamous cell carcinoma of lung
     Dosage: 5 MG, BID
     Route: 048
     Dates: start: 20230216, end: 20230306
  2. INVESTIGATIONAL PRODUCT [Suspect]
     Active Substance: INVESTIGATIONAL PRODUCT
     Indication: Squamous cell carcinoma of lung
     Dosage: 5 MG/KG, Q3W
     Route: 041
     Dates: start: 20230216, end: 20230216
  3. CODEINE PHOSPHATE [Concomitant]
     Active Substance: CODEINE PHOSPHATE
     Dosage: UNK
     Dates: start: 20230303, end: 20230307
  4. VITAMIN C [Concomitant]
     Active Substance: ASCORBIC ACID
     Dosage: UNK
     Dates: start: 20230304, end: 20230307
  5. INOSINE [Concomitant]
     Active Substance: INOSINE
     Dosage: UNK
     Dates: start: 20230304, end: 20230307
  6. FAMOTIDINE [Concomitant]
     Active Substance: FAMOTIDINE
     Dosage: UNK
     Dates: start: 20230304, end: 20230307
  7. OXYCODONE HYDROCHLORIDE [Concomitant]
     Active Substance: OXYCODONE HYDROCHLORIDE
     Dosage: UNK
     Dates: start: 20230304, end: 20230307
  8. PHOSPHOLIPID [Concomitant]
     Active Substance: PHOSPHOLIPID
     Dosage: UNK
     Dates: start: 20230306, end: 20230307
  9. HERBALS\DIAMMONIUM GLYCYRRHIZINATE [Concomitant]
     Active Substance: HERBALS\DIAMMONIUM GLYCYRRHIZINATE
     Dosage: UNK
     Dates: start: 20230306, end: 20230307
  10. COENZYME Q10 [Concomitant]
     Active Substance: DIETARY SUPPLEMENT\UBIDECARENONE
     Dosage: UNK
     Dates: start: 20230306, end: 20230307
  11. KETOROLAC TROMETHAMINE [Concomitant]
     Active Substance: KETOROLAC TROMETHAMINE
     Dosage: UNK
     Dates: start: 20230303, end: 20230303
  12. HEMOCOAGULASE BOTHROPS ATROX [Concomitant]
     Dosage: UNK
     Dates: start: 20230304, end: 20230304
  13. MORPHINE HYDROCHLORIDE [Concomitant]
     Active Substance: MORPHINE HYDROCHLORIDE
     Dosage: UNK
     Dates: start: 20230304, end: 20230306

REACTIONS (2)
  - Pericarditis [Recovering/Resolving]
  - Immune-mediated pericarditis [Recovering/Resolving]

NARRATIVE: CASE EVENT DATE: 20230307
